FAERS Safety Report 13858183 (Version 1)
Quarter: 2017Q3

REPORT INFORMATION
  Report Type: Spontaneous
  Country: US (occurrence: US)
  Receive Date: 20170810
  Receipt Date: 20170810
  Transmission Date: 20171127
  Serious: Yes (Other)
  Sender: FDA-Public Use
  Company Number: None

PATIENT
  Age: 55 Year
  Sex: Female

DRUGS (4)
  1. FOLLISTIM AQ [Concomitant]
     Active Substance: FOLLITROPIN
  2. OVIDREL [Concomitant]
     Active Substance: CHORIOGONADOTROPIN ALFA
  3. BETOPIC-S [Concomitant]
  4. IBRANCE [Suspect]
     Active Substance: PALBOCICLIB
     Indication: BREAST CANCER
     Route: 048
     Dates: start: 20170630, end: 20170802

REACTIONS (1)
  - Disease progression [None]
